FAERS Safety Report 9290024 (Version 2)
Quarter: 2013Q4

REPORT INFORMATION
  Report Type: Spontaneous
  Country: US (occurrence: US)
  Receive Date: 20130515
  Receipt Date: 20131017
  Transmission Date: 20140711
  Serious: Yes (Hospitalization)
  Sender: FDA-Public Use
  Company Number: US-B.I. PHARMACEUTICALS,INC./RIDGEFIELD-2013-BI-13173BP

PATIENT
  Sex: Female
  Weight: 70.31 kg

DRUGS (11)
  1. PRADAXA [Suspect]
     Indication: ANTICOAGULANT THERAPY
     Dosage: 300 MG
     Dates: start: 20110926, end: 20121006
  2. PRADAXA [Suspect]
     Indication: ATRIAL FIBRILLATION
  3. PRILOSEC [Concomitant]
     Indication: GASTRIC DISORDER
     Dosage: 20 MG
     Route: 048
  4. CYCLOBENZAPRINE HCL [Concomitant]
     Indication: MUSCLE RELAXANT THERAPY
     Dosage: 5 MG
     Route: 048
  5. GABAPENTIN [Concomitant]
     Indication: NEURALGIA
     Dosage: 300 MG
     Route: 048
  6. NORCO [Concomitant]
     Indication: PAIN
     Route: 048
  7. MAG GLUCONATE [Concomitant]
     Indication: SUPPLEMENTATION THERAPY
     Dosage: 250 MG
     Route: 048
  8. MELOXICAM [Concomitant]
     Indication: ARTHRALGIA
     Dosage: 7.5 MG
     Route: 048
  9. COREG [Concomitant]
     Indication: CARDIAC DISORDER
     Dosage: 50 MG
     Route: 048
  10. WELCHOL [Concomitant]
     Indication: BLOOD CHOLESTEROL ABNORMAL
     Dosage: 1875 MG
     Route: 048
  11. SPIRONOLACTONE [Concomitant]
     Indication: CARDIAC DISORDER
     Dosage: 25 MG
     Route: 048

REACTIONS (3)
  - Gastrointestinal haemorrhage [Recovered/Resolved]
  - Anaemia [Unknown]
  - Contusion [Unknown]
